FAERS Safety Report 8257609 (Version 11)
Quarter: 2014Q2

REPORT INFORMATION
  Report Type: Report from Study
  Country: CA (occurrence: CA)
  Receive Date: 20111121
  Receipt Date: 20140610
  Transmission Date: 20141212
  Serious: Yes (Hospitalization, Other)
  Sender: FDA-Public Use
  Company Number: PHHY2011CA59535

PATIENT
  Age: 51 Year
  Sex: Female

DRUGS (2)
  1. ZOMETA [Suspect]
     Indication: PLASMA CELL MYELOMA
     Dosage: 4 MG, EVERY 4 WEEKS
     Route: 042
     Dates: start: 20100915
  2. ZOMETA [Suspect]
     Dosage: 4 MG, EVERY 3 MONTHS
     Route: 042

REACTIONS (10)
  - Appendicitis [Unknown]
  - Tympanic membrane perforation [Unknown]
  - Ear pain [Unknown]
  - Pharyngitis [Unknown]
  - Gastroenteritis viral [Unknown]
  - Viral infection [Unknown]
  - Nasopharyngitis [Not Recovered/Not Resolved]
  - Malaise [Unknown]
  - Cough [Not Recovered/Not Resolved]
  - Blood pressure increased [Unknown]
